FAERS Safety Report 5416475-5 (Version None)
Quarter: 2007Q3

REPORT INFORMATION
  Report Type: 
  Country: None (occurrence: None)
  Receive Date: 20070814
  Receipt Date: 20070726
  Transmission Date: 20080115
  Serious: Yes (Hospitalization)
  Sender: FDA-Public Use
  Company Number: 2007RR-09021

PATIENT
  Sex: Female

DRUGS (1)
  1. PARACETAMOL [Suspect]
     Indication: OVERDOSE
     Dosage: 28 G, ORAL
     Route: 048

REACTIONS (2)
  - HYPOKALAEMIA [None]
  - OVERDOSE [None]
